FAERS Safety Report 8419560-9 (Version None)
Quarter: 2012Q2

REPORT INFORMATION
  Report Type: 
  Country: None (occurrence: None)
  Receive Date: 20120607
  Receipt Date: 20120525
  Transmission Date: 20120825
  Serious: No
  Sender: FDA-Public Use
  Company Number: US-ASTRAZENECA-2012SE33894

PATIENT
  Age: 49 Year
  Sex: Female
  Weight: 34.5 kg

DRUGS (10)
  1. TOPROL-XL [Suspect]
     Route: 048
  2. AMBIEN [Concomitant]
  3. TOPROL-XL [Suspect]
     Route: 048
  4. TOPROL-XL [Suspect]
     Indication: VENTRICULAR EXTRASYSTOLES
     Dosage: GENERIC
     Route: 048
  5. MICRO-K [Concomitant]
  6. BACLOFEN [Concomitant]
  7. CLONOPIN [Concomitant]
  8. TOPROL-XL [Suspect]
     Indication: BLOOD PRESSURE ABNORMAL
     Dosage: GENERIC
     Route: 048
  9. LACTULOSE [Concomitant]
  10. ALLEGRA [Concomitant]

REACTIONS (9)
  - IMMUNODEFICIENCY [None]
  - AUTOIMMUNE DISORDER [None]
  - NEUROMYOPATHY [None]
  - DRUG INEFFECTIVE [None]
  - HYPERTENSION [None]
  - IMPAIRED GASTRIC EMPTYING [None]
  - VENTRICULAR EXTRASYSTOLES [None]
  - OFF LABEL USE [None]
  - DRUG INEFFECTIVE FOR UNAPPROVED INDICATION [None]
